FAERS Safety Report 9521974 (Version 2)
Quarter: 2013Q3

REPORT INFORMATION
  Report Type: Report from Study
  Country: DK (occurrence: DK)
  Receive Date: 20130913
  Receipt Date: 20130924
  Transmission Date: 20140515
  Serious: Yes (Hospitalization)
  Sender: FDA-Public Use
  Company Number: DK-CELGENEUS-044-C4047-13090418

PATIENT
  Age: 74 Year
  Sex: Male
  Weight: 108.2 kg

DRUGS (9)
  1. CC-4047 [Suspect]
     Indication: PLASMA CELL MYELOMA
     Dosage: 4 MILLIGRAM
     Route: 048
     Dates: start: 20130503, end: 20130530
  2. CC-4047 [Suspect]
     Dosage: 4 MILLIGRAM
     Route: 048
     Dates: start: 20130830, end: 20130912
  3. DEXAMETHASONE [Suspect]
     Indication: PLASMA CELL MYELOMA
     Dosage: 40 MILLIGRAM
     Route: 065
     Dates: start: 20130503, end: 20130530
  4. DEXAMETHASONE [Suspect]
     Dosage: 40 MILLIGRAM
     Route: 065
     Dates: start: 20130830, end: 20130912
  5. FUROSEMIDE [Concomitant]
     Indication: PROPHYLAXIS
     Dosage: 40 MILLIGRAM
     Route: 048
  6. UNI-KALK [Concomitant]
     Indication: HYPOVITAMINOSIS
     Dosage: 1 TABLET
     Route: 048
  7. LANSOPRAZOLE [Concomitant]
     Indication: PROPHYLAXIS
     Dosage: 30 MILLIGRAM
     Route: 048
  8. TRAMADOL [Concomitant]
     Indication: PROPHYLAXIS
     Route: 048
  9. DALTEPARIN [Concomitant]
     Indication: THROMBOSIS PROPHYLAXIS
     Dosage: 5000 IU (INTERNATIONAL UNIT)
     Route: 048
     Dates: start: 20130830

REACTIONS (2)
  - Pneumonia [Recovered/Resolved]
  - Lung infection [Not Recovered/Not Resolved]
